FAERS Safety Report 8906212 (Version 1)
Quarter: 2012Q4

REPORT INFORMATION
  Report Type: Spontaneous
  Country: US (occurrence: None)
  Receive Date: 20121112
  Receipt Date: 20121112
  Transmission Date: 20130627
  Serious: Yes (Other)
  Sender: FDA-Public Use
  Company Number: None

PATIENT
  Age: 46 Year
  Sex: Male
  Weight: 122.47 kg

DRUGS (2)
  1. CYMBALTA [Suspect]
     Indication: NEUROPATHY
     Dosage: 60mg  daily  po
     Route: 048
     Dates: start: 20120801, end: 20121028
  2. CYMBALTA [Suspect]
     Indication: NERVE PAIN
     Dosage: 60mg  daily  po
     Route: 048
     Dates: start: 20120801, end: 20121028

REACTIONS (12)
  - Feeling abnormal [None]
  - Abnormal dreams [None]
  - Insomnia [None]
  - Nausea [None]
  - Dizziness [None]
  - Hypersomnia [None]
  - Drug withdrawal syndrome [None]
  - Dysstasia [None]
  - Mobility decreased [None]
  - Palpitations [None]
  - Chest pain [None]
  - Hangover [None]
